FAERS Safety Report 11933551 (Version 1)
Quarter: 2016Q1

REPORT INFORMATION
  Report Type: Spontaneous
  Country: US (occurrence: None)
  Receive Date: 20160120
  Receipt Date: 20160120
  Transmission Date: 20160526
  Serious: No
  Sender: FDA-Public Use
  Company Number: None

PATIENT
  Age: 59 Year
  Sex: Male

DRUGS (1)
  1. NEXAVAR [Suspect]
     Active Substance: SORAFENIB
     Indication: HEPATIC CANCER
     Dosage: NEXAVAR 400 BID PO
     Route: 048
     Dates: start: 201512, end: 20160101

REACTIONS (2)
  - Blister [None]
  - Oral mucosal blistering [None]

NARRATIVE: CASE EVENT DATE: 20160107
